FAERS Safety Report 14286060 (Version 1)
Quarter: 2017Q4

REPORT INFORMATION
  Report Type: Spontaneous
  Country: US (occurrence: US)
  Receive Date: 20171214
  Receipt Date: 20171214
  Transmission Date: 20180321
  Serious: No
  Sender: FDA-Public Use
  Company Number: US-ASTELLAS-2017US028307

PATIENT
  Sex: Female

DRUGS (1)
  1. TARCEVA [Suspect]
     Active Substance: ERLOTINIB HYDROCHLORIDE
     Indication: LUNG NEOPLASM MALIGNANT
     Route: 048
     Dates: start: 20130919

REACTIONS (12)
  - Stomatitis [Unknown]
  - Mouth swelling [Unknown]
  - Onychoclasis [Unknown]
  - Alopecia [Unknown]
  - Injection site pain [Unknown]
  - Muscle spasms [Unknown]
  - Gastrooesophageal reflux disease [Unknown]
  - Rash [Unknown]
  - Dyspepsia [Unknown]
  - Visual impairment [Unknown]
  - Diarrhoea [Unknown]
  - Blood pressure fluctuation [Unknown]
